FAERS Safety Report 8516274-1 (Version None)
Quarter: 2012Q3

REPORT INFORMATION
  Report Type: 
  Country: None (occurrence: None)
  Receive Date: 20120717
  Receipt Date: 20120702
  Transmission Date: 20120928
  Serious: Yes (Hospitalization, Other)
  Sender: FDA-Public Use
  Company Number: US-ABBOTT-12P-163-0956965-00

PATIENT
  Sex: Female

DRUGS (1)
  1. HUMIRA [Suspect]
     Indication: CROHN'S DISEASE

REACTIONS (7)
  - MATERNAL EXPOSURE DURING PREGNANCY [None]
  - IMPAIRED HEALING [None]
  - GASTROINTESTINAL DISORDER POSTOPERATIVE [None]
  - CAESAREAN SECTION [None]
  - INTESTINAL OBSTRUCTION [None]
  - GASTROINTESTINAL DISORDER [None]
  - INFLAMMATION [None]
